FAERS Safety Report 20661260 (Version 4)
Quarter: 2023Q1

REPORT INFORMATION
  Report Type: Report from Study
  Country: US (occurrence: US)
  Receive Date: 20220401
  Receipt Date: 20230317
  Transmission Date: 20230418
  Serious: Yes (Hospitalization, Other)
  Sender: FDA-Public Use
  Company Number: US-ACADIA PHARMACEUTICALS INC.-ACA-2022-PIM-001048

PATIENT
  Age: 75 Year
  Sex: Female

DRUGS (14)
  1. NUPLAZID [Suspect]
     Active Substance: PIMAVANSERIN TARTRATE
     Indication: Parkinson^s disease
     Dosage: 34 MILLIGRAM, QD
     Route: 048
     Dates: start: 20211001, end: 202303
  2. NUPLAZID [Suspect]
     Active Substance: PIMAVANSERIN TARTRATE
     Indication: Hallucination
  3. SINEMET [Concomitant]
     Active Substance: CARBIDOPA\LEVODOPA
  4. MELATONIN [Concomitant]
     Active Substance: MELATONIN
  5. AMANTADINE [Concomitant]
     Active Substance: AMANTADINE
  6. DONEPEZIL [Concomitant]
     Active Substance: DONEPEZIL
  7. DICLOFENAC [Concomitant]
     Active Substance: DICLOFENAC
  8. PANTOPRAZOLE [Concomitant]
     Active Substance: PANTOPRAZOLE
  9. ROPINIROLE [Concomitant]
     Active Substance: ROPINIROLE
  10. TRAMADOL [Concomitant]
     Active Substance: TRAMADOL
  11. CARBIDOPA\LEVODOPA [Concomitant]
     Active Substance: CARBIDOPA\LEVODOPA
  12. ELIQUIS [Concomitant]
     Active Substance: APIXABAN
  13. SEROQUEL [Concomitant]
     Active Substance: QUETIAPINE FUMARATE
  14. QUETIAPINE [Concomitant]
     Active Substance: QUETIAPINE

REACTIONS (7)
  - Thrombosis [Recovered/Resolved]
  - Urinary tract infection [Recovered/Resolved]
  - Back injury [Not Recovered/Not Resolved]
  - Confusional state [Not Recovered/Not Resolved]
  - Weight decreased [Not Recovered/Not Resolved]
  - Fall [Not Recovered/Not Resolved]
  - Hallucination [Recovered/Resolved]

NARRATIVE: CASE EVENT DATE: 20220301
